FAERS Safety Report 8130006-0 (Version None)
Quarter: 2012Q1

REPORT INFORMATION
  Report Type: 
  Country: None (occurrence: None)
  Receive Date: 20120210
  Receipt Date: 20120208
  Transmission Date: 20120608
  Serious: Yes (Death, Other)
  Sender: FDA-Public Use
  Company Number: CO-ABBOTT-12P-036-0902937-00

PATIENT
  Sex: Female
  Weight: 60 kg

DRUGS (3)
  1. BUSCAPINE [Concomitant]
     Indication: ABDOMINAL PAIN
     Route: 048
  2. HUMIRA [Suspect]
     Indication: RHEUMATOID ARTHRITIS
     Route: 058
     Dates: start: 20090601, end: 20111206
  3. OMEPRAZOLE [Concomitant]
     Indication: GASTRITIS
     Route: 048

REACTIONS (5)
  - CARDIO-RESPIRATORY ARREST [None]
  - ABDOMINAL PAIN UPPER [None]
  - INFECTIOUS PERITONITIS [None]
  - BILE DUCT STONE [None]
  - RESPIRATORY DISTRESS [None]
